FAERS Safety Report 6386846-1 (Version None)
Quarter: 2009Q4

REPORT INFORMATION
  Report Type: 
  Country: None (occurrence: None)
  Receive Date: 20091001
  Receipt Date: 20091001
  Transmission Date: 20100525
  Serious: No
  Sender: FDA-Public Use
  Company Number: None

PATIENT
  Weight: 85 kg

DRUGS (11)
  1. DILANTIN [Suspect]
     Indication: CONVULSION
     Dosage: 100 MG Q8H PER TUBE
     Dates: start: 20090730, end: 20090731
  2. VANCOMYCIN [Suspect]
     Indication: SEPSIS
     Dosage: 1800 MG X1 IV
     Route: 042
     Dates: start: 20090730
  3. RIFAMPIN [Suspect]
  4. NICODERM [Suspect]
  5. ATIVAN [Concomitant]
  6. COMBIVENT [Concomitant]
  7. GLUCOPHAGE [Concomitant]
  8. NEXIUM [Concomitant]
  9. HALDOL [Concomitant]
  10. NOVOLOG [Concomitant]
  11. LEVAQUIN [Concomitant]

REACTIONS (1)
  - RASH MACULAR [None]
